FAERS Safety Report 13387074 (Version 3)
Quarter: 2017Q2

REPORT INFORMATION
  Report Type: Report from Study
  Country: FR (occurrence: FR)
  Receive Date: 20170330
  Receipt Date: 20170511
  Transmission Date: 20170830
  Serious: Yes (Other)
  Sender: FDA-Public Use
  Company Number: FR-ASTELLAS-2017US010984

PATIENT
  Age: 65 Year
  Sex: Male

DRUGS (4)
  1. CORTANCYL [Concomitant]
     Active Substance: PREDNISONE
     Indication: IMMUNOSUPPRESSION
     Route: 048
     Dates: start: 20130226
  2. SIROLIMUS. [Concomitant]
     Active Substance: SIROLIMUS
     Indication: IMMUNOSUPPRESSION
     Route: 048
     Dates: start: 20131119
  3. TACROLIMUS. [Suspect]
     Active Substance: TACROLIMUS
     Indication: IMMUNOSUPPRESSION
     Route: 048
     Dates: start: 20141010
  4. KARDEGIC [Concomitant]
     Active Substance: ASPIRIN LYSINE
     Indication: PROPHYLAXIS
     Route: 048
     Dates: start: 20160422

REACTIONS (1)
  - Adrenal mass [Not Recovered/Not Resolved]

NARRATIVE: CASE EVENT DATE: 20160607
